FAERS Safety Report 6187669-9 (Version None)
Quarter: 2009Q2

REPORT INFORMATION
  Report Type: 
  Country: None (occurrence: None)
  Receive Date: 20090511
  Receipt Date: 20090502
  Transmission Date: 20091009
  Serious: Yes (Life-Threatening, Hospitalization, Other)
  Sender: FDA-Public Use
  Company Number: AE-2009-030

PATIENT
  Sex: Male
  Weight: 92 kg

DRUGS (5)
  1. METFORMIN HCL [Suspect]
     Indication: TYPE 2 DIABETES MELLITUS
     Dosage: 850MG, QD, ORAL
     Route: 048
     Dates: start: 20080929, end: 20081009
  2. CAPTOPRIL [Suspect]
     Indication: HYPERTENSION
     Dosage: 1DF, QD, ORAL
     Route: 048
     Dates: start: 20080919, end: 20081007
  3. CAPTOPRIL [Suspect]
     Indication: HYPERTENSION
     Dosage: 19 DF, ORALLY
     Route: 048
     Dates: start: 20080919, end: 20081007
  4. IBUPROFEN [Concomitant]
  5. TRAMADOL HCL [Concomitant]

REACTIONS (1)
  - THROMBOTIC THROMBOCYTOPENIC PURPURA [None]
